FAERS Safety Report 9443950 (Version 3)
Quarter: 2013Q4

REPORT INFORMATION
  Report Type: Report from Study
  Country: JP (occurrence: JP)
  Receive Date: 20130807
  Receipt Date: 20131121
  Transmission Date: 20140711
  Serious: Yes (Death, Other)
  Sender: FDA-Public Use
  Company Number: JP-ROCHE-1234947

PATIENT
  Age: 85 Year
  Sex: Female

DRUGS (9)
  1. METHOXY POLYETHYLENE GLYCOL-EPOETIN BETA [Suspect]
     Indication: NEPHROGENIC ANAEMIA
     Route: 058
     Dates: start: 20130308, end: 20130519
  2. FAMOTIDINE [Concomitant]
     Indication: NEPHROSCLEROSIS
     Dosage: DRUG REPORTED AS FAMOSTAGINE-D
     Route: 048
     Dates: end: 20130311
  3. AMLODIPINE [Concomitant]
     Indication: NEPHROSCLEROSIS
     Route: 048
     Dates: end: 20130311
  4. ALLOZYM [Concomitant]
     Indication: NEPHROSCLEROSIS
     Route: 048
     Dates: start: 20130306, end: 20130311
  5. MERCAZOLE [Concomitant]
     Indication: NEPHROSCLEROSIS
     Route: 048
     Dates: end: 20130311
  6. LIPITOR [Concomitant]
     Indication: NEPHROSCLEROSIS
     Route: 048
     Dates: end: 20130311
  7. SENNOSIDE [Concomitant]
     Indication: NEPHROSCLEROSIS
     Route: 048
     Dates: end: 20130311
  8. IFENPRODIL TARTRATE [Concomitant]
     Indication: NEPHROSCLEROSIS
     Dosage: DRUG REPORTED AS TECHNIS
     Route: 048
     Dates: end: 20130311
  9. HYDROCHLOROTHIAZIDE/TELMISARTAN [Concomitant]
     Indication: NEPHROSCLEROSIS
     Dosage: DRUG REPORTED AS MICOMBI
     Route: 048
     Dates: end: 20130311

REACTIONS (5)
  - Femur fracture [Fatal]
  - Cardiac failure [Fatal]
  - Aortic valve stenosis [Unknown]
  - Hypertension [Unknown]
  - Skin disorder [Not Recovered/Not Resolved]
